FAERS Safety Report 24173032 (Version 17)
Quarter: 2025Q4

REPORT INFORMATION
  Report Type: Report from Study
  Country: CA (occurrence: CA)
  Receive Date: 20240805
  Receipt Date: 20251231
  Transmission Date: 20260118
  Serious: Yes (Hospitalization, Disabling, Other)
  Sender: CSL BEHRING
  Company Number: CA-BEH-2024175712

PATIENT
  Age: 58 Year
  Sex: Female
  Weight: 111.7 kg

DRUGS (20)
  1. HIZENTRA [Suspect]
     Active Substance: HUMAN IMMUNOGLOBULIN G
     Indication: Primary immunodeficiency syndrome
     Dosage: 12 G, QW
     Route: 065
     Dates: start: 20240521
  2. HIZENTRA [Suspect]
     Active Substance: HUMAN IMMUNOGLOBULIN G
     Dosage: 14 G, QW
     Route: 065
     Dates: start: 20240521
  3. HIZENTRA [Suspect]
     Active Substance: HUMAN IMMUNOGLOBULIN G
     Dosage: 14 GM QW
     Route: 058
     Dates: start: 20240521, end: 202408
  4. HIZENTRA [Suspect]
     Active Substance: HUMAN IMMUNOGLOBULIN G
     Dosage: 14 GM QW
     Route: 058
     Dates: start: 202408
  5. HIZENTRA [Suspect]
     Active Substance: HUMAN IMMUNOGLOBULIN G
     Dosage: UNK, QW
     Route: 065
     Dates: start: 20240521
  6. HIZENTRA [Suspect]
     Active Substance: HUMAN IMMUNOGLOBULIN G
     Dosage: 16G, QW
     Route: 058
     Dates: start: 20240521
  7. HIZENTRA [Suspect]
     Active Substance: HUMAN IMMUNOGLOBULIN G
     Dosage: 16G, QW
     Route: 058
     Dates: start: 20240521
  8. PLAQUENIL [Concomitant]
     Active Substance: HYDROXYCHLOROQUINE SULFATE
  9. FOLIC ACID [Concomitant]
     Active Substance: FOLIC ACID
  10. FERAMAX [Concomitant]
     Active Substance: IRON\POLYSACCHARIDES
  11. CYMBALTA [Concomitant]
     Active Substance: DULOXETINE HYDROCHLORIDE
  12. MICARDIS [Concomitant]
     Active Substance: TELMISARTAN
  13. VITAMIN B12 [Concomitant]
     Active Substance: CYANOCOBALAMIN
     Dosage: UNK UNK, QOW
     Route: 030
  14. ENBREL [Concomitant]
     Active Substance: ETANERCEPT
     Dosage: UNK, QW
  15. METHOTREXATE SODIUM [Concomitant]
     Active Substance: METHOTREXATE SODIUM
  16. VITAMIN D NOS [Concomitant]
     Active Substance: CHOLECALCIFEROL\ERGOCALCIFEROL
     Dosage: UNK, QOW
  17. BACLOFEN [Concomitant]
     Active Substance: BACLOFEN
  18. SYMBICORT [Concomitant]
     Active Substance: BUDESONIDE\FORMOTEROL FUMARATE DIHYDRATE
     Dosage: PRN
  19. ENSTILAR [Concomitant]
     Active Substance: BETAMETHASONE DIPROPIONATE\CALCIPOTRIENE HYDRATE
  20. IRON [Concomitant]
     Active Substance: IRON

REACTIONS (30)
  - Diplopia [Unknown]
  - Acoustic neuroma [Not Recovered/Not Resolved]
  - Deafness unilateral [Unknown]
  - Nephrolithiasis [Unknown]
  - Steroid diabetes [Unknown]
  - Circulatory collapse [Unknown]
  - Tachycardia [Unknown]
  - Dyspnoea [Unknown]
  - Dyspnoea [Not Recovered/Not Resolved]
  - Coma [Not Recovered/Not Resolved]
  - Ventriculo-peritoneal shunt [Not Recovered/Not Resolved]
  - Shunt malfunction [Not Recovered/Not Resolved]
  - Central nervous system infection [Not Recovered/Not Resolved]
  - Loss of consciousness [Not Recovered/Not Resolved]
  - Deep vein thrombosis [Not Recovered/Not Resolved]
  - Central nervous system infection [Not Recovered/Not Resolved]
  - Infusion site reaction [Unknown]
  - Sinusitis [Unknown]
  - Sinusitis [Unknown]
  - Laryngitis [Unknown]
  - Hypoaesthesia [Not Recovered/Not Resolved]
  - Hypoaesthesia oral [Not Recovered/Not Resolved]
  - Sinusitis [Unknown]
  - Dyspnoea [Unknown]
  - Nausea [Not Recovered/Not Resolved]
  - Sinusitis [Not Recovered/Not Resolved]
  - Infection [Unknown]
  - Hyperglycaemia [Unknown]
  - Weight increased [Unknown]
  - Therapy change [Unknown]

NARRATIVE: CASE EVENT DATE: 20240101
